FAERS Safety Report 15819086 (Version 1)
Quarter: 2019Q1

REPORT INFORMATION
  Report Type: Spontaneous
  Country: US (occurrence: US)
  Receive Date: 20190114
  Receipt Date: 20190114
  Transmission Date: 20190417
  Serious: No
  Sender: FDA-Public Use
  Company Number: US-ROCHE-2230331

PATIENT
  Sex: Male
  Weight: 46.7 kg

DRUGS (2)
  1. NUTROPIN [Suspect]
     Active Substance: SOMATROPIN
     Route: 058
  2. NUTROPIN [Suspect]
     Active Substance: SOMATROPIN
     Indication: HYPOPITUITARISM
     Dosage: 2.2 MG AND 2.4 MG ALTERNATING 6 DAYS PER WEEK.?FORMULATION 20 MG PEN
     Route: 058

REACTIONS (2)
  - Product administration error [Unknown]
  - No adverse event [Unknown]
